FAERS Safety Report 6667414-0 (Version None)
Quarter: 2010Q2

REPORT INFORMATION
  Report Type: 
  Country: None (occurrence: None)
  Receive Date: 20100401
  Receipt Date: 20100325
  Transmission Date: 20101027
  Serious: Yes (Death)
  Sender: FDA-Public Use
  Company Number: 2010SP014368

PATIENT
  Age: 19 Year
  Sex: Male

DRUGS (9)
  1. SUBOXONE [Suspect]
     Indication: DRUG DEPENDENCE
  2. REMERON [Suspect]
  3. METHADONE HCL [Suspect]
  4. XANAX [Suspect]
  5. KEPPRA [Suspect]
  6. DEXTROMETHORPHAN [Concomitant]
  7. DOXYLAMIN [Concomitant]
  8. TRAMADOL HCL [Concomitant]
  9. CANNABIS [Concomitant]

REACTIONS (3)
  - ACCIDENTAL OVERDOSE [None]
  - DRUG SCREEN POSITIVE [None]
  - DRUG TOXICITY [None]
